FAERS Safety Report 4608982-X (Version None)
Quarter: 2005Q1

REPORT INFORMATION
  Report Type: 
  Country: None (occurrence: None)
  Receive Date: 20050311
  Receipt Date: 20050304
  Transmission Date: 20050727
  Serious: Yes (Death, Hospitalization)
  Sender: FDA-Public Use
  Company Number: A044-002-005509

PATIENT
  Sex: Female

DRUGS (4)
  1. ARICEPT [Suspect]
     Dosage: 5 MG, 1 IN 1 D, ORAL; 3 YEARS AGO
     Route: 048
  2. UNSPECIFIED DIURETIC [Concomitant]
  3. UNSPECIFIED VENOUS TONIC [Concomitant]
  4. VITAMIN D [Concomitant]

REACTIONS (2)
  - CARDIAC DISORDER [None]
  - MYOCARDIAL INFARCTION [None]
